FAERS Safety Report 8613761 (Version 2)
Quarter: 2014Q1

REPORT INFORMATION
  Report Type: Spontaneous
  Country: US (occurrence: US)
  Receive Date: 20120614
  Receipt Date: 20140328
  Transmission Date: 20141002
  Serious: Yes (Hospitalization)
  Sender: FDA-Public Use
  Company Number: US-BAYER-2012-056922

PATIENT
  Age: 24 Year
  Sex: Female
  Weight: 48.98 kg

DRUGS (15)
  1. GIANVI [Suspect]
     Dosage: UNK
     Dates: start: 2011, end: 2012
  2. YAZ [Suspect]
     Dosage: UNK
     Dates: start: 2007, end: 2011
  3. AMOXICILLIN TRIHYDRATE W/CLAVULANTE POTASSIUM [Concomitant]
     Dosage: 125 MG, UNK
     Route: 048
  4. AMOXICILLIN TRIHYDRATE W/CLAVULANTE POTASSIUM [Concomitant]
     Dosage: 875 MG, UNK
     Route: 048
  5. AMPHETAMINE SALTS [Concomitant]
     Dosage: 30 MG, UNK
     Route: 048
  6. AZITHROMYCIN [Concomitant]
     Dosage: 500 MG, 1 TABLET DAILY
     Route: 048
  7. CYCLOBENZAPRINE [Concomitant]
     Dosage: 10 MG, BID
     Route: 048
  8. MECLIZINE [Concomitant]
     Dosage: 25 MG, UNK
     Route: 048
  9. VITAMIN D2 [Concomitant]
     Dosage: 1.25 MG, OW
  10. VITAMIN D2 [Concomitant]
     Dosage: 50000 UNITS, OW
     Route: 048
  11. ADDERALL [Concomitant]
     Indication: ATTENTION DEFICIT/HYPERACTIVITY DISORDER
     Dosage: 30 MG, ONCE DAILY
     Route: 048
  12. MS CONTIN [Concomitant]
     Indication: ARTHRALGIA
     Dosage: 15 MG, EVERY 12 HOURS
     Route: 048
  13. VICODIN [Concomitant]
     Indication: PAIN
  14. NUCYNTA [Concomitant]
     Indication: ARTHRALGIA
  15. XANAX [Concomitant]
     Dosage: 0.5 MG, UNK

REACTIONS (2)
  - Cerebrovascular accident [None]
  - Injury [None]
